FAERS Safety Report 24717762 (Version 1)
Quarter: 2024Q4

REPORT INFORMATION
  Report Type: Spontaneous
  Country: US (occurrence: None)
  Receive Date: 20241210
  Receipt Date: 20241210
  Transmission Date: 20250115
  Serious: Yes (Other)
  Sender: Public
  Company Number: None

PATIENT
  Sex: Female

DRUGS (11)
  1. FINGOLIMOD [Suspect]
     Active Substance: FINGOLIMOD
     Route: 048
     Dates: start: 20240124
  2. ALEVE [Concomitant]
     Active Substance: NAPROXEN SODIUM
  3. VITAMIN B COMPLEX [Concomitant]
     Active Substance: CYANOCOBALAMIN\DEXPANTHENOL\NIACINAMIDE\PYRIDOXINE HYDROCHLORIDE\RIBOFLAVIN 5^-PHOSPHATE SODIUM\THIA
  4. BACLOFEN [Concomitant]
     Active Substance: BACLOFEN
  5. CRANBERRY [Concomitant]
     Active Substance: CRANBERRY
  6. FINGOLIMOD [Concomitant]
     Active Substance: FINGOLIMOD
  7. LISINOPRIL [Concomitant]
     Active Substance: LISINOPRIL
  8. OMEPRAZOLE [Concomitant]
     Active Substance: OMEPRAZOLE
  9. PROBIOTICS NOS [Concomitant]
     Active Substance: PROBIOTICS NOS
  10. STOOL SOFTEN [Concomitant]
  11. VITAMIN C [Concomitant]
     Active Substance: ASCORBIC ACID

REACTIONS (2)
  - Ovarian cancer [None]
  - Lymphadenectomy [None]
